FAERS Safety Report 15613264 (Version 1)
Quarter: 2018Q4

REPORT INFORMATION
  Report Type: Spontaneous
  Country: US (occurrence: US)
  Receive Date: 20181108
  Receipt Date: 20181108
  Transmission Date: 20190205
  Serious: No
  Sender: FDA-Public Use
  Company Number: None

PATIENT
  Age: 59 Year
  Sex: Female

DRUGS (1)
  1. EPCLUSA [Suspect]
     Active Substance: SOFOSBUVIR\VELPATASVIR
     Indication: HEPATITIS C
     Dates: start: 20180913

REACTIONS (6)
  - Peripheral swelling [None]
  - Joint swelling [None]
  - Increased tendency to bruise [None]
  - Skin exfoliation [None]
  - Dry skin [None]
  - Erythema [None]

NARRATIVE: CASE EVENT DATE: 20181105
